FAERS Safety Report 4704387-1 (Version None)
Quarter: 2005Q2

REPORT INFORMATION
  Report Type: 
  Country: None (occurrence: None)
  Receive Date: 20050630
  Receipt Date: 20050627
  Transmission Date: 20051028
  Serious: Yes (Hospitalization)
  Sender: FDA-Public Use
  Company Number: US-GLAXOSMITHKLINE-A0564273A

PATIENT
  Age: 61 Year
  Sex: Male

DRUGS (11)
  1. WELLBUTRIN XL [Suspect]
     Indication: DEPRESSION
     Route: 048
     Dates: start: 20050506, end: 20050617
  2. AMITRIPTYLINE HCL [Concomitant]
  3. FLEXERIL [Concomitant]
  4. VASOTEC [Concomitant]
  5. CARBIDOPA [Concomitant]
  6. DARVOCET [Concomitant]
  7. ENALAPRIL MALEATE [Concomitant]
  8. VERAPAMIL [Concomitant]
  9. CLAVIX [Concomitant]
  10. CYCLOBENZAPRINE HCL [Concomitant]
  11. MECLIZINE [Concomitant]

REACTIONS (4)
  - GRAND MAL CONVULSION [None]
  - HYPOAESTHESIA [None]
  - STARING [None]
  - UNRESPONSIVE TO VERBAL STIMULI [None]
